FAERS Safety Report 8349555-5 (Version None)
Quarter: 2012Q2

REPORT INFORMATION
  Report Type: 
  Country: None (occurrence: None)
  Receive Date: 20120510
  Receipt Date: 20120507
  Transmission Date: 20120825
  Serious: Yes (Hospitalization)
  Sender: FDA-Public Use
  Company Number: US-BAYER-2012-045467

PATIENT
  Age: 23 Year
  Sex: Female

DRUGS (2)
  1. YAZ [Suspect]
  2. BACTRIM [Concomitant]
     Dosage: UNK
     Route: 048
     Dates: start: 20100716

REACTIONS (1)
  - DEEP VEIN THROMBOSIS [None]
